FAERS Safety Report 16400976 (Version 2)
Quarter: 2019Q3

REPORT INFORMATION
  Report Type: Report from Study
  Country: US (occurrence: US)
  Receive Date: 20190606
  Receipt Date: 20190703
  Transmission Date: 20191004
  Serious: Yes (Other)
  Sender: FDA-Public Use
  Company Number: US-TESARO-2019-TSO01704-US

PATIENT
  Age: 62 Year
  Sex: Female

DRUGS (3)
  1. ZEJULA [Suspect]
     Active Substance: NIRAPARIB
     Indication: OVARIAN CANCER
     Dosage: 300 MG, QD
     Route: 048
  2. ZEJULA [Suspect]
     Active Substance: NIRAPARIB
     Dosage: 200 MG, UNK
  3. ZEJULA [Suspect]
     Active Substance: NIRAPARIB
     Dosage: UNK

REACTIONS (5)
  - Platelet count decreased [Unknown]
  - Abdominal discomfort [Unknown]
  - Nausea [Unknown]
  - Laboratory test abnormal [Unknown]
  - Eye operation [Unknown]

NARRATIVE: CASE EVENT DATE: 201904
